FAERS Safety Report 9109535 (Version 1)
Quarter: 2013Q1

REPORT INFORMATION
  Report Type: Spontaneous
  Country: FR (occurrence: FR)
  Receive Date: 20130222
  Receipt Date: 20130222
  Transmission Date: 20140127
  Serious: Yes (Hospitalization)
  Sender: FDA-Public Use
  Company Number: FR-B.I. PHARMACEUTICALS,INC./RIDGEFIELD-2013-FF-00501FF

PATIENT
  Age: 55 Year
  Sex: Female

DRUGS (3)
  1. PRADAXA [Suspect]
     Dosage: 220 MG
     Route: 048
  2. PRADAXA [Suspect]
     Dosage: 110 MG
     Route: 048
     Dates: end: 20121109
  3. IBUPROFENE [Suspect]
     Route: 048
     Dates: start: 20121031, end: 20121109

REACTIONS (5)
  - Prothrombin time shortened [Recovered/Resolved]
  - Activated partial thromboplastin time prolonged [Recovered/Resolved]
  - Prothrombin level decreased [Recovered/Resolved]
  - Coagulation factor V level decreased [Recovered/Resolved]
  - Coagulation factor X level decreased [Not Recovered/Not Resolved]
